FAERS Safety Report 5973615-7 (Version None)
Quarter: 2008Q4

REPORT INFORMATION
  Report Type: 
  Country: None (occurrence: None)
  Receive Date: 20081201
  Receipt Date: 20081124
  Transmission Date: 20090506
  Serious: Yes (Other)
  Sender: FDA-Public Use
  Company Number: US-ELI_LILLY_AND_COMPANY-US200809006753

PATIENT
  Sex: Female

DRUGS (10)
  1. BYETTA [Suspect]
     Indication: TYPE 2 DIABETES MELLITUS
     Dosage: 5 UG, 2/D
     Route: 058
     Dates: start: 20060322, end: 20070613
  2. FORTAMET [Concomitant]
     Dosage: 500 MG, DAILY (1/D)
     Dates: start: 20051111, end: 20070613
  3. METFORMIN HCL [Concomitant]
     Dosage: 500 MG, DAILY (1/D)
     Dates: start: 20070613, end: 20080110
  4. ANTI-DIABETICS [Concomitant]
     Dosage: 50 MG, DAILY (1/D)
  5. CYMBALTA [Concomitant]
     Dosage: 30 MG, DAILY (1/D)
     Dates: start: 20071220
  6. LISINOPRIL [Concomitant]
     Dosage: 20 MG, DAILY (1/D)
     Dates: start: 20060322, end: 20070613
  7. MAG-OX [Concomitant]
     Dosage: 400 MG, DAILY (1/D)
     Dates: start: 20070326, end: 20070327
  8. VALTREX [Concomitant]
     Dosage: 1 G, DAILY (1/D)
     Dates: start: 20051130, end: 20070420
  9. VYTORIN [Concomitant]
     Dosage: UNK, DAILY (1/D)
     Dates: start: 20070613
  10. XANAX [Concomitant]
     Dosage: 0.5 MG, UNK
     Dates: start: 20081025

REACTIONS (1)
  - ADENOCARCINOMA PANCREAS [None]
